FAERS Safety Report 24277249 (Version 4)
Quarter: 2025Q3

REPORT INFORMATION
  Report Type: Report from Study
  Country: CA (occurrence: CA)
  Receive Date: 20240903
  Receipt Date: 20250917
  Transmission Date: 20251020
  Serious: Yes (Hospitalization, Other)
  Sender: TAKEDA
  Company Number: CA-TAKEDA-2024TUS052789

PATIENT
  Age: 0 Year
  Sex: Female
  Weight: 9.6 kg

DRUGS (13)
  1. HUMAN IMMUNOGLOBULIN G [Suspect]
     Active Substance: HUMAN IMMUNOGLOBULIN G
     Indication: Primary immunodeficiency syndrome
     Dosage: 1 GRAM, 1/WEEK
     Dates: start: 20240524
  2. HUMAN IMMUNOGLOBULIN G [Suspect]
     Active Substance: HUMAN IMMUNOGLOBULIN G
     Dosage: UNK UNK, 1/WEEK
  3. HUMAN IMMUNOGLOBULIN G [Suspect]
     Active Substance: HUMAN IMMUNOGLOBULIN G
  4. HUMAN IMMUNOGLOBULIN G [Suspect]
     Active Substance: HUMAN IMMUNOGLOBULIN G
  5. HUMAN IMMUNOGLOBULIN G [Suspect]
     Active Substance: HUMAN IMMUNOGLOBULIN G
     Dosage: 6 GRAM, 1/WEEK
  6. HUMAN IMMUNOGLOBULIN G [Suspect]
     Active Substance: HUMAN IMMUNOGLOBULIN G
     Dosage: 6 GRAM, 1/WEEK
  7. HUMAN IMMUNOGLOBULIN G [Suspect]
     Active Substance: HUMAN IMMUNOGLOBULIN G
     Dosage: UNK, Q2WEEKS
  8. VITAMIN D [Concomitant]
     Active Substance: VITAMIN D NOS
     Dosage: 400 INTERNATIONAL UNIT, QD
  9. SALINE [Concomitant]
     Active Substance: SODIUM CHLORIDE
     Dosage: UNK UNK, BID
  10. NASONEX [Concomitant]
     Active Substance: MOMETASONE FUROATE
     Dosage: UNK UNK, QD
  11. FLUTICASONE [Concomitant]
     Active Substance: FLUTICASONE
  12. VENTOLIN [Concomitant]
     Active Substance: ALBUTEROL SULFATE
     Dosage: UNK UNK, Q4HR
  13. NIRSEVIMAB [Concomitant]
     Active Substance: NIRSEVIMAB
     Indication: Infection prophylaxis

REACTIONS (27)
  - Gastroenteritis rotavirus [Unknown]
  - Metabolic acidosis [Unknown]
  - Dehydration [Unknown]
  - COVID-19 [Unknown]
  - Human bocavirus infection [Unknown]
  - Urinary tract infection [Recovered/Resolved]
  - Upper respiratory tract infection [Unknown]
  - Diarrhoea [Recovered/Resolved]
  - Product use issue [Unknown]
  - Impetigo [Unknown]
  - Skin lesion [Unknown]
  - Walking aid user [Unknown]
  - Skin infection [Unknown]
  - Localised infection [Recovering/Resolving]
  - Papule [Unknown]
  - Tympanic membrane hyperaemia [Unknown]
  - Haemorrhage [Unknown]
  - Gastroenteritis [Unknown]
  - Device use issue [Unknown]
  - Injection site urticaria [Recovered/Resolved]
  - Rhinorrhoea [Unknown]
  - Injection site erythema [Unknown]
  - Cough [Unknown]
  - Vomiting [Recovered/Resolved]
  - Pyrexia [Recovered/Resolved]
  - Nasal congestion [Unknown]
  - Rhinorrhoea [Unknown]

NARRATIVE: CASE EVENT DATE: 20240501
